FAERS Safety Report 19753497 (Version 3)
Quarter: 2021Q4

REPORT INFORMATION
  Report Type: Spontaneous
  Country: IT (occurrence: IT)
  Receive Date: 20210826
  Receipt Date: 20211119
  Transmission Date: 20220303
  Serious: Yes (Death, Other)
  Sender: FDA-Public Use
  Company Number: NVSC2021IT193057

PATIENT
  Age: 9 Month
  Sex: Female

DRUGS (1)
  1. ZOLGENSMA [Suspect]
     Active Substance: ONASEMNOGENE ABEPARVOVEC-XIOI
     Indication: Spinal muscular atrophy
     Dosage: UNK
     Route: 065
     Dates: start: 202101

REACTIONS (8)
  - Death [Fatal]
  - Child maltreatment syndrome [Unknown]
  - Hydrocephalus [Unknown]
  - Encephalitis [Unknown]
  - Meningeal thickening [Unknown]
  - Macrocephaly [Unknown]
  - Infection [Unknown]
  - Tremor [Unknown]

NARRATIVE: CASE EVENT DATE: 20210805
